FAERS Safety Report 10077171 (Version 1)
Quarter: 2014Q2

REPORT INFORMATION
  Report Type: Spontaneous
  Country: US (occurrence: US)
  Receive Date: 20140414
  Receipt Date: 20140414
  Transmission Date: 20141212
  Serious: Yes (Other)
  Sender: FDA-Public Use
  Company Number: US-ABBVIE-14P-163-1222847-00

PATIENT
  Age: 64 Year
  Sex: Male

DRUGS (2)
  1. ANDROGEL [Suspect]
     Indication: BLOOD TESTOSTERONE DECREASED
     Dosage: 4 PUMPS
     Route: 061
     Dates: start: 2011, end: 201402
  2. ANDROGEL [Suspect]
     Dosage: 1 % ANDROGEL

REACTIONS (2)
  - Deep vein thrombosis [Unknown]
  - Erythema [Recovering/Resolving]
